FAERS Safety Report 10340558 (Version 4)
Quarter: 2015Q1

REPORT INFORMATION
  Report Type: Spontaneous
  Country: US (occurrence: US)
  Receive Date: 20140724
  Receipt Date: 20150108
  Transmission Date: 20150720
  Serious: Yes (Hospitalization, Other)
  Sender: FDA-Public Use
  Company Number: US-GLAXOSMITHKLINE-A1082143A

PATIENT
  Age: 58 Year
  Sex: Female

DRUGS (12)
  1. UNSPECIFIED MEDICATION [Concomitant]
     Active Substance: UNSPECIFIED INGREDIENT
  2. NEBULIZER SOLUTION (MEDICATION UNKNOWN) [Concomitant]
     Active Substance: UNSPECIFIED INGREDIENT
  3. ASPIRIN. [Concomitant]
     Active Substance: ASPIRIN
  4. VENTOLIN [Suspect]
     Active Substance: ALBUTEROL SULFATE
     Indication: CHRONIC OBSTRUCTIVE PULMONARY DISEASE
     Dosage: 2 PUFF(S), PRN
     Route: 055
     Dates: start: 2012
  5. HYDROCODONE-APAP [Concomitant]
     Active Substance: ACETAMINOPHEN\HYDROCODONE
  6. LEVOTHYROXINE [Concomitant]
     Active Substance: LEVOTHYROXINE
  7. CARVEDILOL. [Concomitant]
     Active Substance: CARVEDILOL
  8. VENTOLIN [Suspect]
     Active Substance: ALBUTEROL SULFATE
     Dosage: UNK
  9. NEXIUM [Concomitant]
     Active Substance: ESOMEPRAZOLE MAGNESIUM
  10. LISINOPRIL. [Concomitant]
     Active Substance: LISINOPRIL
  11. BRILINTA [Concomitant]
     Active Substance: TICAGRELOR
  12. ATORVASTATIN [Concomitant]
     Active Substance: ATORVASTATIN

REACTIONS (5)
  - Coronary arterial stent insertion [Recovered/Resolved]
  - Drug administration error [Not Recovered/Not Resolved]
  - Dyspnoea [Not Recovered/Not Resolved]
  - Myocardial infarction [Recovered/Resolved]
  - Cardiac disorder [Not Recovered/Not Resolved]

NARRATIVE: CASE EVENT DATE: 20140716
